FAERS Safety Report 20813768 (Version 2)
Quarter: 2022Q2

REPORT INFORMATION
  Report Type: Report from Study
  Country: DE (occurrence: DE)
  Receive Date: 20220511
  Receipt Date: 20220627
  Transmission Date: 20220721
  Serious: Yes (Other)
  Sender: FDA-Public Use
  Company Number: DE-BRISTOL-MYERS SQUIBB COMPANY-2022-026021

PATIENT
  Sex: Female

DRUGS (5)
  1. DASATINIB [Suspect]
     Active Substance: DASATINIB
     Indication: Chronic myeloid leukaemia
     Dosage: (TOTAL DAILY DOSE 100MG) ON 7 DAYS PER WEEK.
     Route: 065
     Dates: start: 20150812, end: 20150831
  2. DASATINIB [Suspect]
     Active Substance: DASATINIB
     Route: 065
     Dates: start: 20150901, end: 20150906
  3. DASATINIB [Suspect]
     Active Substance: DASATINIB
     Dosage: (TOTAL DAILY DOSE?100 MG) ON 7 DAYS PER WEEK.
     Route: 065
     Dates: start: 20150907, end: 20160117
  4. HYDROXYUREA [Suspect]
     Active Substance: HYDROXYUREA
     Indication: Chronic myeloid leukaemia
     Dosage: (TOTAL DAILY DOSE 1000 MG).
     Route: 065
     Dates: start: 20150526, end: 20150811
  5. HYDROXYUREA [Suspect]
     Active Substance: HYDROXYUREA
     Route: 065
     Dates: start: 20160315, end: 20210614

REACTIONS (4)
  - Skin disorder [Recovered/Resolved]
  - Dyspnoea [Recovered/Resolved]
  - Pleural effusion [Recovered/Resolved]
  - Diarrhoea [Recovered/Resolved]

NARRATIVE: CASE EVENT DATE: 20150601
